FAERS Safety Report 12569640 (Version 1)
Quarter: 2016Q3

REPORT INFORMATION
  Report Type: Spontaneous
  Country: US (occurrence: US)
  Receive Date: 20160719
  Receipt Date: 20160719
  Transmission Date: 20161109
  Serious: No
  Sender: FDA-Public Use
  Company Number: US-PERRIGO-16US013929

PATIENT
  Sex: Male
  Weight: 59.86 kg

DRUGS (2)
  1. CLARITIN [Concomitant]
     Active Substance: LORATADINE
     Indication: PERENNIAL ALLERGY
     Dosage: UNK
     Route: 065
  2. POLYETHYLENE GLYCOL 3350. [Suspect]
     Active Substance: POLYETHYLENE GLYCOL 3350
     Indication: CONSTIPATION
     Dosage: MORE THAN 17GRAMS, QD
     Route: 048
     Dates: start: 2014, end: 20160304

REACTIONS (5)
  - Drug administered to patient of inappropriate age [Unknown]
  - Abdominal pain upper [Not Recovered/Not Resolved]
  - Incorrect drug administration duration [Unknown]
  - Diarrhoea [Not Recovered/Not Resolved]
  - Incorrect dose administered [Recovered/Resolved]

NARRATIVE: CASE EVENT DATE: 2014
